FAERS Safety Report 9164473 (Version 1)
Quarter: 2013Q1

REPORT INFORMATION
  Report Type: Spontaneous
  Country: DK (occurrence: None)
  Receive Date: 20130221
  Receipt Date: 20130221
  Transmission Date: 20140127
  Serious: Yes (Hospitalization)
  Sender: FDA-Public Use
  Company Number: 2013MA001193

PATIENT
  Age: 60 Year
  Sex: Female

DRUGS (1)
  1. PACLITAXEL [Suspect]
     Route: 041
     Dates: start: 20120603, end: 20120603

REACTIONS (6)
  - Dyspnoea [None]
  - Foaming at mouth [None]
  - Agitation [None]
  - Hypersensitivity [None]
  - Altered state of consciousness [None]
  - Blood pressure decreased [None]
